FAERS Safety Report 5472614-1 (Version None)
Quarter: 2007Q4

REPORT INFORMATION
  Report Type: 
  Country: None (occurrence: None)
  Receive Date: 20071001
  Receipt Date: 20070904
  Transmission Date: 20080405
  Serious: No
  Sender: FDA-Public Use
  Company Number: US-ASTRAZENECA-2005UW17353

PATIENT
  Age: 57 Year
  Sex: Female
  Weight: 54.9 kg

DRUGS (5)
  1. ARIMIDEX [Suspect]
     Indication: BREAST CANCER
     Route: 048
     Dates: start: 20051101
  2. LIPITOR [Concomitant]
  3. MUCOMYST [Concomitant]
  4. PREDNISOLONE [Concomitant]
  5. RESTASIS [Concomitant]

REACTIONS (5)
  - ARTHRALGIA [None]
  - DRY EYE [None]
  - HOT FLUSH [None]
  - HYPOAESTHESIA [None]
  - OEDEMA PERIPHERAL [None]
